FAERS Safety Report 13148854 (Version 2)
Quarter: 2017Q1

REPORT INFORMATION
  Report Type: Report from Study
  Country: CO (occurrence: CO)
  Receive Date: 20170125
  Receipt Date: 20170213
  Transmission Date: 20170428
  Serious: Yes (Other)
  Sender: FDA-Public Use
  Company Number: PHHY2015CO171646

PATIENT
  Age: 65 Year
  Sex: Female
  Weight: 65 kg

DRUGS (6)
  1. CALCITRIOL. [Concomitant]
     Active Substance: CALCITRIOL
     Indication: PRODUCT USED FOR UNKNOWN INDICATION
     Route: 065
  2. CAPECITABINE. [Concomitant]
     Active Substance: CAPECITABINE
     Indication: BREAST CANCER
     Dosage: 5 TABLETS FOR 14 DAYS, THEN REST FOR 7 DAYS AND RESTART IT FOR 14 DAYS AGAIN
     Route: 048
  3. TYKERB [Suspect]
     Active Substance: LAPATINIB DITOSYLATE
     Indication: BREAST CANCER
     Dosage: 5 DF, QD 250 MG (5 TABLETS PER DAY)
     Route: 048
     Dates: start: 20130427
  4. ACETAMINOPHEN. [Concomitant]
     Active Substance: ACETAMINOPHEN
     Indication: PAIN
     Dosage: 500 MG, BID
     Route: 048
  5. LETROZOLE. [Concomitant]
     Active Substance: LETROZOLE
     Indication: BREAST CANCER
     Dosage: 2.5 MG, QD
     Route: 048
  6. LEVOTHYROXINE. [Concomitant]
     Active Substance: LEVOTHYROXINE
     Indication: THYROID DISORDER
     Dosage: 150 MG, QD (1 TABLET OF 100 MG AND OTHERTABLET OF 50 MG DAILY)
     Route: 048

REACTIONS (19)
  - Influenza [Recovering/Resolving]
  - Dysphonia [Recovering/Resolving]
  - Onychomycosis [Recovering/Resolving]
  - Viral infection [Unknown]
  - Headache [Recovering/Resolving]
  - Fungal infection [Unknown]
  - Burning sensation [Unknown]
  - Stomatitis [Unknown]
  - Diarrhoea [Unknown]
  - Pain in extremity [Not Recovered/Not Resolved]
  - Dry skin [Unknown]
  - Decreased appetite [Recovering/Resolving]
  - Vulvovaginal rash [Unknown]
  - Nausea [Recovering/Resolving]
  - Malaise [Recovered/Resolved]
  - Vulvovaginal burning sensation [Unknown]
  - Anorectal discomfort [Unknown]
  - Onychomadesis [Unknown]
  - Vomiting [Unknown]

NARRATIVE: CASE EVENT DATE: 20151229
